FAERS Safety Report 7745066-6 (Version None)
Quarter: 2011Q3

REPORT INFORMATION
  Report Type: 
  Country: None (occurrence: None)
  Receive Date: 20110913
  Receipt Date: 20110902
  Transmission Date: 20111222
  Serious: No
  Sender: FDA-Public Use
  Company Number: US-BIOGENIDEC-2011BI034153

PATIENT
  Sex: Female

DRUGS (3)
  1. TYSABRI [Suspect]
     Route: 042
     Dates: start: 20110609
  2. TYSABRI [Suspect]
     Indication: MULTIPLE SCLEROSIS
     Route: 042
     Dates: start: 20110228
  3. TYSABRI [Suspect]
     Route: 042
     Dates: start: 20090609, end: 20101010

REACTIONS (2)
  - PNEUMONIA PRIMARY ATYPICAL [None]
  - NASOPHARYNGITIS [None]
